FAERS Safety Report 5141784-7 (Version None)
Quarter: 2006Q4

REPORT INFORMATION
  Report Type: 
  Country: None (occurrence: None)
  Receive Date: 20061027
  Receipt Date: 20061018
  Transmission Date: 20070319
  Serious: Yes (Disabling)
  Sender: FDA-Public Use
  Company Number: 2006125980

PATIENT
  Age: 51 Year
  Sex: Female

DRUGS (1)
  1. LIPITOR [Suspect]
     Indication: BLOOD CHOLESTEROL INCREASED
     Dosage: 20 MG (20 MG, 1 IN 1 D), ORAL
     Route: 048
     Dates: start: 20060801, end: 20061001

REACTIONS (7)
  - ABDOMINAL PAIN UPPER [None]
  - ARTHRALGIA [None]
  - CONDITION AGGRAVATED [None]
  - INSOMNIA [None]
  - MYALGIA [None]
  - PAIN IN EXTREMITY [None]
  - TENDON PAIN [None]
